FAERS Safety Report 7466343-2 (Version None)
Quarter: 2011Q2

REPORT INFORMATION
  Report Type: 
  Country: None (occurrence: None)
  Receive Date: 20110509
  Receipt Date: 20100810
  Transmission Date: 20111010
  Serious: No
  Sender: FDA-Public Use
  Company Number: US-ALEXION-A201000957

PATIENT
  Sex: Female

DRUGS (2)
  1. LOVENOX [Concomitant]
     Indication: THROMBOSIS PROPHYLAXIS
  2. SOLIRIS [Suspect]
     Indication: PAROXYSMAL NOCTURNAL HAEMOGLOBINURIA
     Dosage: UNK
     Route: 042
     Dates: start: 20070101

REACTIONS (1)
  - FATIGUE [None]
